FAERS Safety Report 7312033-6 (Version None)
Quarter: 2011Q1

REPORT INFORMATION
  Report Type: 
  Country: None (occurrence: None)
  Receive Date: 20110224
  Receipt Date: 20110210
  Transmission Date: 20110831
  Serious: Yes (Death)
  Sender: FDA-Public Use
  Company Number: US-SHIONOGI USA, INC-2011000016

PATIENT
  Age: 40 Year
  Sex: Male

DRUGS (11)
  1. NISOLDIPINE ER [Suspect]
  2. ENALAPRIL MALEATE [Suspect]
  3. SIMVASTATIN [Suspect]
  4. ACETAMINOPHEN AND HYDROCODONE BITARTRATE [Suspect]
  5. TAMSULOSIN [Suspect]
  6. HYDRALAZINE [Suspect]
  7. FUROSEMIDE [Suspect]
  8. LEVOTHYROXINE SODIUM [Suspect]
  9. AMLODIPINE [Suspect]
  10. GLYBURIDE [Suspect]
  11. CLOPIDOGREL [Suspect]

REACTIONS (1)
  - COMPLETED SUICIDE [None]
